FAERS Safety Report 9296328 (Version 2)
Quarter: 2013Q3

REPORT INFORMATION
  Report Type: Not Available
  Country: FR (occurrence: FR)
  Receive Date: 20130517
  Receipt Date: 20130730
  Transmission Date: 20140515
  Serious: Yes (Other)
  Sender: FDA-Public Use
  Company Number: FR-NAPPMUNDI-GBR-2013-0013958

PATIENT
  Age: 72 Year
  Sex: Female

DRUGS (6)
  1. OXYNORMORO COMPRIME ORODISPERSIBLE 5 MG [Suspect]
     Indication: PRODUCT USED FOR UNKNOWN INDICATION
     Dosage: 5 MG, QID
     Route: 048
     Dates: start: 20130206
  2. COUMADINE [Concomitant]
     Indication: EMBOLISM
     Dosage: 4 MG, DAILY
     Dates: start: 20130208
  3. LOVENOX [Concomitant]
     Indication: EMBOLISM
     Dosage: UNK
     Dates: start: 20130206, end: 20130208
  4. AUGMENTIN                          /00756801/ [Concomitant]
     Indication: LUNG INFECTION
     Dosage: UNK
     Dates: start: 20130205, end: 20130214
  5. DOLIPRANE [Concomitant]
  6. VENLAFAXINE [Concomitant]
     Dosage: 37.5 MG, UNK
     Dates: start: 20130210

REACTIONS (1)
  - Hepatitis cholestatic [Unknown]
